FAERS Safety Report 5068340-3 (Version None)
Quarter: 2006Q3

REPORT INFORMATION
  Report Type: 
  Country: None (occurrence: None)
  Receive Date: 20060802
  Receipt Date: 20050809
  Transmission Date: 20061208
  Serious: No
  Sender: FDA-Public Use
  Company Number: US-BRISTOL-MYERS SQUIBB COMPANY-13067939

PATIENT
  Age: 79 Year
  Sex: Male
  Weight: 83 kg

DRUGS (3)
  1. COUMADIN [Suspect]
     Indication: ATRIAL FIBRILLATION
     Dosage: CURRENT DOSE = 7.5 MG MON, WED, FRI; 10 MG TUES, THURS, SAT, SUN
  2. SIMVASTATIN [Concomitant]
  3. PROCAINAMIDE HCL [Concomitant]

REACTIONS (2)
  - INSOMNIA [None]
  - LETHARGY [None]
